FAERS Safety Report 25090671 (Version 1)
Quarter: 2025Q1

REPORT INFORMATION
  Report Type: Spontaneous
  Country: FR (occurrence: FR)
  Receive Date: 20250318
  Receipt Date: 20250318
  Transmission Date: 20250408
  Serious: Yes (Death)
  Sender: TEVA
  Company Number: None

PATIENT
  Age: 89 Year
  Sex: Male
  Weight: 71 kg

DRUGS (7)
  1. RISPERIDONE [Suspect]
     Active Substance: RISPERIDONE
     Indication: Agitation
     Route: 048
     Dates: start: 20250209, end: 20250209
  2. BISOPROLOL [Suspect]
     Active Substance: BISOPROLOL
     Indication: Atrial fibrillation
     Dosage: BISOPROLOL (FUMARATE)
     Route: 048
     Dates: start: 20241001
  3. MIANSERIN HYDROCHLORIDE [Suspect]
     Active Substance: MIANSERIN HYDROCHLORIDE
     Indication: Aggression
     Dosage: FILM-COATED TABLET, SCORED
     Route: 048
     Dates: start: 20250208
  4. ELIQUIS [Suspect]
     Active Substance: APIXABAN
     Indication: Atrial fibrillation
     Route: 048
     Dates: start: 20241001
  5. PREDNISONE [Suspect]
     Active Substance: PREDNISONE
     Indication: Pemphigoid
     Route: 048
     Dates: start: 20241101
  6. ALPRAZOLAM [Suspect]
     Active Substance: ALPRAZOLAM
     Indication: Product used for unknown indication
     Dosage: SCORED TABLET
     Route: 048
  7. FENTANYL [Suspect]
     Active Substance: FENTANYL
     Indication: Pain
     Dosage: INTRO ON 01/27 AT 25 ?G/DAY, DOSE INCREASE ON 02/08); 50 MICROGRAMS/HOUR
     Route: 062
     Dates: start: 20250208

REACTIONS (2)
  - Fall [Fatal]
  - Haematoma [Fatal]

NARRATIVE: CASE EVENT DATE: 20250210
